FAERS Safety Report 8962532 (Version 1)
Quarter: 2012Q4

REPORT INFORMATION
  Report Type: Spontaneous
  Country: US (occurrence: None)
  Receive Date: 20121205
  Receipt Date: 20121205
  Transmission Date: 20130627
  Serious: Yes (Hospitalization, Other)
  Sender: FDA-Public Use
  Company Number: AUR-APL-2012-05157

PATIENT
  Age: 85 Year
  Sex: Female

DRUGS (9)
  1. LISINOPRIL [Suspect]
     Indication: ESSENTIAL HYPERTENSION
     Dosage: 40 mg (40 mg, 1 in 1 D), Unknown
  2. VALSARTAN [Suspect]
     Indication: ESSENTIAL HYPERTENSION
     Dosage: 160 mg (160 mg, 1 in 1 D), Unknown
  3. ASPIRIN (ACETYLSALICYLIC ACID) [Concomitant]
  4. SIMVASTATIN (SIMVASTATIN) [Concomitant]
  5. METOPROLOL SUCCINATE (METOPROLOL SUCCINATE) [Concomitant]
  6. HYDROCHLOROTHIAZIDE (HYDROCHLOROTHIAZIDE) [Concomitant]
  7. CLONIDINE (CLONIDINE) [Concomitant]
  8. ESOMEPRAZOLE (ESOMEPRAZOLE) [Concomitant]
  9. BUDESONIDE/FORMOTEROL FUMARATE (BUDESONIDE W/FORMOTEROL FUMARATE) [Concomitant]

REACTIONS (7)
  - Cough [None]
  - Weaning failure [None]
  - Tracheo-oesophageal fistula [None]
  - Endotracheal intubation complication [None]
  - General physical health deterioration [None]
  - Weaning failure [None]
  - Angioedema [None]
